FAERS Safety Report 6859924-8 (Version None)
Quarter: 2010Q3

REPORT INFORMATION
  Report Type: 
  Country: None (occurrence: None)
  Receive Date: 20100720
  Receipt Date: 20100705
  Transmission Date: 20110219
  Serious: Yes (Hospitalization)
  Sender: FDA-Public Use
  Company Number: PHHY2010DE44303

PATIENT
  Sex: Female

DRUGS (3)
  1. CGS 20267 T30748+ [Suspect]
     Indication: BREAST CANCER
     Dosage: 2.5 MG DAILY
     Route: 048
     Dates: start: 20090616, end: 20091216
  2. ZOMETA [Suspect]
     Dosage: UNK
     Dates: start: 20090601
  3. GEMZAR [Concomitant]
     Dosage: 1000, D1,8,15,Q28D
     Dates: start: 20100120

REACTIONS (4)
  - HOT FLUSH [None]
  - LYMPHADENOPATHY [None]
  - LYMPHOEDEMA [None]
  - METASTASES TO LYMPH NODES [None]
